FAERS Safety Report 23953718 (Version 4)
Quarter: 2024Q3

REPORT INFORMATION
  Report Type: Spontaneous
  Country: US (occurrence: US)
  Receive Date: 20240608
  Receipt Date: 20240923
  Transmission Date: 20241016
  Serious: Yes (Hospitalization, Other)
  Sender: SANOFI AVENTIS
  Company Number: US-SA-SAC20240607000133

PATIENT
  Age: 34 Year
  Sex: Female

DRUGS (5)
  1. DUPIXENT [Suspect]
     Active Substance: DUPILUMAB
     Indication: Asthma
     Dosage: 300 MG, QOW
     Route: 058
     Dates: start: 202210
  2. DUPIXENT [Suspect]
     Active Substance: DUPILUMAB
     Dosage: 300 MG, QOW
     Route: 058
     Dates: start: 202302
  3. ALBUTEROL [Concomitant]
     Active Substance: ALBUTEROL
     Dosage: UNK, PRN
  4. MONTELUKAST SODIUM [Concomitant]
     Active Substance: MONTELUKAST\MONTELUKAST SODIUM
     Dosage: UNK, PRN
  5. TRELEGY ELLIPTA [Concomitant]
     Active Substance: FLUTICASONE FUROATE\UMECLIDINIUM BROMIDE\VILANTEROL TRIFENATATE
     Dosage: UNK UNK, PRN

REACTIONS (6)
  - Hypoxia [Unknown]
  - Pyrexia [Unknown]
  - Cough [Unknown]
  - Dyspnoea [Recovering/Resolving]
  - Wheezing [Unknown]
  - Back pain [Unknown]

NARRATIVE: CASE EVENT DATE: 20240513
